FAERS Safety Report 14109211 (Version 6)
Quarter: 2018Q4

REPORT INFORMATION
  Report Type: Spontaneous
  Country: KR (occurrence: KR)
  Receive Date: 20171019
  Receipt Date: 20181212
  Transmission Date: 20190204
  Serious: Yes (Other)
  Sender: FDA-Public Use
  Company Number: KR-009507513-1710KOR007667

PATIENT
  Age: 45 Year
  Sex: Female
  Weight: 74.1 kg

DRUGS (13)
  1. NOXAFIL [Suspect]
     Active Substance: POSACONAZOLE
     Indication: ANTIFUNGAL PROPHYLAXIS
     Dosage: 300 MG, TWICE A DAY (BID)
     Route: 048
     Dates: start: 20170503, end: 20170503
  2. NOXAFIL [Suspect]
     Active Substance: POSACONAZOLE
     Dosage: 300 MG, ONCE A DAY (QD)
     Route: 048
     Dates: start: 20170504, end: 20170705
  3. CYTARABINE. [Concomitant]
     Active Substance: CYTARABINE
     Indication: ACUTE MYELOID LEUKAEMIA
     Dosage: STRENGTH: 2G/40ML, DOSE: 2460MG, QD (ONCE DAILY)
     Route: 042
     Dates: start: 20170621, end: 20170625
  4. GRASIN [Concomitant]
     Indication: PROPHYLAXIS
     Dosage: 600 MICROGRAM, QD
     Route: 058
     Dates: start: 20170502, end: 20170507
  5. ZAVEDOS [Concomitant]
     Active Substance: IDARUBICIN
     Indication: ACUTE MYELOID LEUKAEMIA
     Dosage: 17 MG, QD
     Route: 042
     Dates: start: 20170503, end: 20170505
  6. ALLOPURINOL. [Concomitant]
     Active Substance: ALLOPURINOL
     Indication: PROPHYLAXIS
     Dosage: 1 TABLET, THREE TIMES A DAY (TID)
     Route: 048
     Dates: start: 20170503, end: 20170623
  7. URSA TABLETS [Concomitant]
     Indication: HEPATITIS B CORE ANTIBODY POSITIVE
     Dosage: 1 TABLET, THREE TIMES A DAY (TID)
     Route: 048
     Dates: start: 20170501
  8. PIPERACILLIN AND TAZOBACTAM [Concomitant]
     Active Substance: PIPERACILLIN SODIUM\TAZOBACTAM SODIUM
     Indication: INFECTION PROPHYLAXIS
     Dosage: 4.5 G, QID
     Route: 042
     Dates: start: 20170504, end: 20170617
  9. FLUDARA [Concomitant]
     Active Substance: FLUDARABINE PHOSPHATE
     Indication: ACUTE MYELOID LEUKAEMIA
     Dosage: 53 MILLIGRAM, QD
     Route: 042
     Dates: start: 20170503, end: 20170507
  10. ONSETRON [Concomitant]
     Active Substance: ONDANSETRON
     Indication: PROPHYLAXIS OF NAUSEA AND VOMITING
     Dosage: 1 VIAL, BID (FORMULATION: VIAL)
     Route: 042
     Dates: start: 20170503, end: 20170509
  11. LEUSTATIN [Concomitant]
     Active Substance: CLADRIBINE
     Indication: ACUTE MYELOID LEUKAEMIA
     Dosage: 6 MG, QD
     Route: 042
     Dates: start: 20170621, end: 20170625
  12. CYTARABINE. [Suspect]
     Active Substance: CYTARABINE
     Indication: ACUTE MYELOID LEUKAEMIA
     Dosage: 3560 MILLIGRAM, QD
     Route: 042
     Dates: start: 20170503, end: 20170507
  13. GRASIN [Concomitant]
     Dosage: 300 MICROGRAM, QD
     Route: 058
     Dates: start: 20170620, end: 20170625

REACTIONS (6)
  - Enterococcal bacteraemia [Recovered/Resolved]
  - Neutropenia [Recovered/Resolved]
  - Headache [Recovered/Resolved]
  - Febrile neutropenia [Recovered/Resolved]
  - Chest pain [Recovered/Resolved]
  - Eczema [Recovered/Resolved]

NARRATIVE: CASE EVENT DATE: 201705
